FAERS Safety Report 18445926 (Version 1)
Quarter: 2020Q4

REPORT INFORMATION
  Report Type: Spontaneous
  Country: CN (occurrence: CN)
  Receive Date: 20201030
  Receipt Date: 20201030
  Transmission Date: 20210114
  Serious: Yes (Hospitalization)
  Sender: FDA-Public Use
  Company Number: CN-ASTRAZENECA-2020SF40725

PATIENT
  Age: 16 Year
  Sex: Female
  Weight: 54 kg

DRUGS (6)
  1. OULAINING [Concomitant]
     Active Substance: OXIRACETAM
     Indication: AFFECTIVE DISORDER
     Route: 048
     Dates: start: 20200914, end: 20201014
  2. SEROQUEL [Suspect]
     Active Substance: QUETIAPINE FUMARATE
     Indication: AFFECTIVE DISORDER
     Route: 048
     Dates: start: 20200901, end: 20200923
  3. SEROQUEL [Suspect]
     Active Substance: QUETIAPINE FUMARATE
     Indication: AFFECTIVE DISORDER
     Route: 048
     Dates: start: 20200910, end: 20201014
  4. LITHIUM CARBONATE. [Concomitant]
     Active Substance: LITHIUM CARBONATE
     Indication: AFFECTIVE DISORDER
     Route: 048
     Dates: start: 20200916, end: 20200923
  5. SEROQUEL [Suspect]
     Active Substance: QUETIAPINE FUMARATE
     Indication: AFFECTIVE DISORDER
     Route: 048
     Dates: start: 20200923, end: 20201014
  6. BENZHEXOL [Concomitant]
     Active Substance: TRIHEXYPHENIDYL
     Indication: AFFECTIVE DISORDER
     Route: 048
     Dates: start: 20200902, end: 20200927

REACTIONS (1)
  - Hepatic function abnormal [Recovering/Resolving]

NARRATIVE: CASE EVENT DATE: 20200921
